FAERS Safety Report 5081710-2 (Version None)
Quarter: 2006Q3

REPORT INFORMATION
  Report Type: 
  Country: None (occurrence: None)
  Receive Date: 20060816
  Receipt Date: 20050823
  Transmission Date: 20061208
  Serious: No
  Sender: FDA-Public Use
  Company Number: US-BRISTOL-MYERS SQUIBB COMPANY-13087622

PATIENT
  Age: 65 Year
  Sex: Female
  Weight: 91 kg

DRUGS (16)
  1. GLUCOVANCE [Suspect]
     Indication: DIABETES MELLITUS
     Route: 048
  2. ACTOPLUS MET [Concomitant]
  3. DEMADEX [Concomitant]
  4. POTASSIUM [Concomitant]
  5. VERAPAMIL ER [Concomitant]
  6. ASPIRIN [Concomitant]
  7. OCUVITE [Concomitant]
  8. VITAMIN [Concomitant]
  9. BETIMOL [Concomitant]
     Route: 047
  10. ALLOPURINOL [Concomitant]
  11. ACCUPRIL [Concomitant]
  12. TRICOR [Concomitant]
  13. ZOCOR [Concomitant]
  14. ZETIA [Concomitant]
  15. TOPROL-XL [Concomitant]
  16. TRAVATAN [Concomitant]
     Route: 047

REACTIONS (1)
  - HYPERHIDROSIS [None]
